FAERS Safety Report 12702729 (Version 1)
Quarter: 2016Q3

REPORT INFORMATION
  Report Type: Spontaneous
  Country: US (occurrence: US)
  Receive Date: 20160831
  Receipt Date: 20160831
  Transmission Date: 20161109
  Serious: Yes (Other)
  Sender: FDA-Public Use
  Company Number: US-CELGENEUS-USA-2016086857

PATIENT
  Sex: Male

DRUGS (3)
  1. REVLIMID [Suspect]
     Active Substance: LENALIDOMIDE
     Dosage: 10 - 25MG
     Route: 048
     Dates: start: 201308
  2. REVLIMID [Suspect]
     Active Substance: LENALIDOMIDE
     Route: 048
     Dates: start: 201412
  3. REVLIMID [Suspect]
     Active Substance: LENALIDOMIDE
     Indication: NON-HODGKIN^S LYMPHOMA
     Route: 048
     Dates: start: 201306

REACTIONS (1)
  - Rash pruritic [Recovered/Resolved]
